FAERS Safety Report 15359415 (Version 1)
Quarter: 2018Q3

REPORT INFORMATION
  Report Type: Spontaneous
  Country: SA (occurrence: SA)
  Receive Date: 20180907
  Receipt Date: 20180907
  Transmission Date: 20181010
  Serious: Yes (Hospitalization, Other)
  Sender: FDA-Public Use
  Company Number: SA-IPCA LABORATORIES LIMITED-IPC-2018-SA-001897

PATIENT

DRUGS (1)
  1. METFORMIN [Suspect]
     Active Substance: METFORMIN HYDROCHLORIDE
     Indication: WEIGHT CONTROL
     Dosage: 60 DF, SINGLE
     Route: 048

REACTIONS (11)
  - Blood creatinine increased [Recovered/Resolved]
  - Tachycardia [Recovered/Resolved]
  - Blood pressure decreased [Recovered/Resolved]
  - Toxicity to various agents [Unknown]
  - Lactic acidosis [Recovered/Resolved]
  - Leukocytosis [Recovered/Resolved]
  - Hyperphosphataemia [Recovered/Resolved]
  - Suicide attempt [Unknown]
  - Intentional overdose [Unknown]
  - Hypoglycaemia [Recovered/Resolved]
  - Hypocalcaemia [Recovered/Resolved]
